FAERS Safety Report 4783146-8 (Version None)
Quarter: 2005Q3

REPORT INFORMATION
  Report Type: 
  Country: None (occurrence: None)
  Receive Date: 20050914
  Receipt Date: 20050616
  Transmission Date: 20060218
  Serious: Yes (Hospitalization)
  Sender: FDA-Public Use
  Company Number: 163-20785-05060237

PATIENT
  Age: 71 Year
  Sex: Male
  Weight: 83.2 kg

DRUGS (3)
  1. THALOMID [Suspect]
     Indication: NON-SMALL CELL LUNG CANCER
     Dosage: 200MG WITH A WEEKLY TITRATION
     Dates: start: 20021106, end: 20021112
  2. PACLITAXEL [Suspect]
     Indication: NON-SMALL CELL LUNG CANCER
     Dosage: 225 MG/M2 OVER 2 HOURS ON DAY 1
     Dates: start: 20021106, end: 20021106
  3. CARBOPLATIN [Suspect]
     Indication: NON-SMALL CELL LUNG CANCER
     Dosage: AUC = 6 OVER 15-20MIN. ON DAY 1 EVERY 21 DAYS X 2, INTRAVENOUS
     Route: 042
     Dates: start: 20021106, end: 20021106

REACTIONS (1)
  - PULMONARY EMBOLISM [None]
